FAERS Safety Report 8947750 (Version 1)
Quarter: 2012Q4

REPORT INFORMATION
  Report Type: 
  Country: CN (occurrence: CN)
  Receive Date: 20121204
  Receipt Date: 20121204
  Transmission Date: 20130627
  Serious: Yes (Other)
  Sender: FDA-Public Use
  Company Number: CN-BAYER-2012-125674

PATIENT
  Age: 37 Year
  Sex: Female

DRUGS (4)
  1. AVELOX [Suspect]
     Indication: LUNG INFECTION
     Dosage: 400 mg, QD
     Route: 048
     Dates: start: 20120424, end: 20120501
  2. AMPHOTERICIN B [Concomitant]
     Dosage: 1 mg, QD
     Route: 041
     Dates: start: 20120130, end: 20120510
  3. FLUCYTOSINE [Concomitant]
     Dosage: 1 g, QID
     Route: 048
     Dates: start: 20120130, end: 20120510
  4. CEFOPERAZONE SODIUM/SULBACTAM SODIUM [Concomitant]
     Indication: LUNG INFECTION
     Dosage: 3 g, QD
     Route: 041
     Dates: start: 20120404, end: 20120424

REACTIONS (8)
  - Dermatitis exfoliative [Recovering/Resolving]
  - Pruritus [Recovering/Resolving]
  - Rash papular [Recovering/Resolving]
  - Rash papular [Recovering/Resolving]
  - Erythema [Recovering/Resolving]
  - Swelling [Recovering/Resolving]
  - Eye disorder [Recovering/Resolving]
  - Oedema peripheral [Recovering/Resolving]
